FAERS Safety Report 4904811-5 (Version None)
Quarter: 2006Q1

REPORT INFORMATION
  Report Type: 
  Country: None (occurrence: None)
  Receive Date: 20060208
  Receipt Date: 20051006
  Transmission Date: 20060701
  Serious: No
  Sender: FDA-Public Use
  Company Number: US-GLAXOSMITHKLINE-A0577372A

PATIENT
  Age: 60 Year
  Sex: Female

DRUGS (3)
  1. PAXIL [Suspect]
     Indication: ANXIETY
     Dosage: 10MG PER DAY
     Route: 048
     Dates: start: 20050701, end: 20050801
  2. DIFLUCAN [Concomitant]
  3. PAXIL CR [Concomitant]
     Indication: ANXIETY
     Dosage: 12.5MG UNKNOWN
     Route: 048

REACTIONS (4)
  - FEELING ABNORMAL [None]
  - NECK PAIN [None]
  - SHOULDER PAIN [None]
  - THERAPEUTIC RESPONSE UNEXPECTED [None]
